FAERS Safety Report 17935450 (Version 9)
Quarter: 2020Q3

REPORT INFORMATION
  Report Type: Report from Study
  Country: JP (occurrence: JP)
  Receive Date: 20200624
  Receipt Date: 20200916
  Transmission Date: 20201103
  Serious: Yes (Hospitalization)
  Sender: FDA-Public Use
  Company Number: JP-EISAI MEDICAL RESEARCH-EC-2020-076362

PATIENT
  Age: 76 Year
  Sex: Female
  Weight: 37.4 kg

DRUGS (19)
  1. LENVATINIB [Suspect]
     Active Substance: LENVATINIB
     Indication: NON-SMALL CELL LUNG CANCER METASTATIC
     Dosage: STARTING DOSE 20 MG, FLUCTUATED DOSES.
     Route: 048
     Dates: start: 20200421, end: 20200601
  2. PEMBROLIZUMAB. [Suspect]
     Active Substance: PEMBROLIZUMAB
     Indication: NON-SMALL CELL LUNG CANCER METASTATIC
     Route: 042
     Dates: start: 20200421, end: 20200512
  3. AZILVA [Concomitant]
     Active Substance: AZILSARTAN KAMEDOXOMIL
     Dates: start: 200301
  4. AMLODIPINE BESYLATE. [Concomitant]
     Active Substance: AMLODIPINE BESYLATE
     Dates: start: 200301
  5. DERMOVATE [Concomitant]
     Active Substance: CLOBETASOL
     Dates: start: 20200505, end: 20200719
  6. PEMBROLIZUMAB. [Suspect]
     Active Substance: PEMBROLIZUMAB
     Route: 042
     Dates: start: 20200602, end: 20200602
  7. PEMBROLIZUMAB. [Suspect]
     Active Substance: PEMBROLIZUMAB
     Route: 042
     Dates: start: 20200629
  8. ALFACALCIDOL [Concomitant]
     Active Substance: ALFACALCIDOL
     Dates: start: 20200131
  9. SENNOSIDES. [Concomitant]
     Active Substance: SENNOSIDES
     Dates: start: 20200526
  10. TAKECAB [Concomitant]
     Active Substance: VONOPRAZAN FUMARATE
     Dates: start: 20190501
  11. LENVATINIB [Suspect]
     Active Substance: LENVATINIB
     Route: 048
     Dates: start: 20200602, end: 20200619
  12. LENVATINIB [Suspect]
     Active Substance: LENVATINIB
     Route: 048
     Dates: start: 20200629
  13. CALCIUM ASPARTATE [Concomitant]
     Active Substance: CALCIUM ASPARTATE
     Dates: start: 20200131
  14. LATANOPROST. [Concomitant]
     Active Substance: LATANOPROST
     Dates: start: 200901
  15. DESALEX TABLETS 5 MG [Concomitant]
     Dates: start: 20200506
  16. MAGNESIUM OXIDE. [Concomitant]
     Active Substance: MAGNESIUM OXIDE
     Dates: start: 20200526, end: 20200719
  17. HEPARIN SODIUM. [Concomitant]
     Active Substance: HEPARIN SODIUM
     Dates: start: 20200506, end: 20200719
  18. URSODIOL. [Concomitant]
     Active Substance: URSODIOL
     Dates: start: 20190111
  19. RANMARK [Concomitant]
     Active Substance: DENOSUMAB
     Dates: start: 20200131

REACTIONS (1)
  - Tracheal haemorrhage [Recovered/Resolved]

NARRATIVE: CASE EVENT DATE: 20200619
